FAERS Safety Report 21106199 (Version 1)
Quarter: 2022Q3

REPORT INFORMATION
  Report Type: Spontaneous
  Country: PT (occurrence: PT)
  Receive Date: 20220720
  Receipt Date: 20220720
  Transmission Date: 20221027
  Serious: Yes (Hospitalization)
  Sender: FDA-Public Use
  Company Number: PT-VER-202200001

PATIENT
  Sex: Male

DRUGS (2)
  1. TRIPTORELIN [Suspect]
     Active Substance: TRIPTORELIN
     Indication: Hormone-refractory prostate cancer
     Dosage: 6/6 M,
     Route: 065
  2. ERLEADA [Concomitant]
     Active Substance: APALUTAMIDE
     Indication: Hormone-refractory prostate cancer
     Route: 048
     Dates: start: 202203, end: 2022

REACTIONS (1)
  - Hypersensitivity myocarditis [Unknown]

NARRATIVE: CASE EVENT DATE: 20220501
